FAERS Safety Report 9379106 (Version 1)
Quarter: 2013Q3

REPORT INFORMATION
  Report Type: Report from Study
  Country: US (occurrence: US)
  Receive Date: 20130702
  Receipt Date: 20130702
  Transmission Date: 20140515
  Serious: Yes (Death, Hospitalization)
  Sender: FDA-Public Use
  Company Number: PHEH2013US014110

PATIENT
  Sex: Female

DRUGS (1)
  1. AFINITOR [Suspect]
     Dosage: 10 MG, QD
     Route: 048
     Dates: start: 201303

REACTIONS (4)
  - Death [Fatal]
  - Cardiac disorder [Recovering/Resolving]
  - Renal impairment [Unknown]
  - Decreased appetite [Recovering/Resolving]
